FAERS Safety Report 11838362 (Version 1)
Quarter: 2015Q4

REPORT INFORMATION
  Report Type: Spontaneous
  Country: US (occurrence: US)
  Receive Date: 20151215
  Receipt Date: 20151215
  Transmission Date: 20160305
  Serious: No
  Sender: FDA-Public Use
  Company Number: US-PFIZER INC-2015396763

PATIENT
  Sex: Male

DRUGS (1)
  1. CARDURA [Suspect]
     Active Substance: DOXAZOSIN MESYLATE
     Indication: POLLAKIURIA
     Dosage: UNK, DAILY (12-20 MG IN A DAY)
     Dates: end: 2015

REACTIONS (2)
  - Intentional product use issue [Unknown]
  - Sexual dysfunction [Unknown]
